FAERS Safety Report 12378972 (Version 1)
Quarter: 2016Q2

REPORT INFORMATION
  Report Type: Spontaneous
  Country: JP (occurrence: JP)
  Receive Date: 20160517
  Receipt Date: 20160517
  Transmission Date: 20160815
  Serious: Yes (Other)
  Sender: FDA-Public Use
  Company Number: JP-PFIZER INC-2016253689

PATIENT

DRUGS (2)
  1. ANAEMETRO [Suspect]
     Active Substance: METRONIDAZOLE
     Dosage: 1500 MG, DAILY
     Route: 041
  2. FLAGYL [Suspect]
     Active Substance: METRONIDAZOLE\METRONIDAZOLE HYDROCHLORIDE
     Dosage: UNK
     Route: 048

REACTIONS (1)
  - Encephalopathy [Unknown]
